FAERS Safety Report 5670606-0 (Version None)
Quarter: 2008Q1

REPORT INFORMATION
  Report Type: 
  Country: None (occurrence: None)
  Receive Date: 20080207
  Receipt Date: 20071128
  Transmission Date: 20080703
  Serious: Yes (Hospitalization)
  Sender: FDA-Public Use
  Company Number: 2007S1012911

PATIENT
  Age: 50 Year
  Sex: Male

DRUGS (3)
  1. CARBAMAZEPINE [Suspect]
     Dosage: ORAL
     Route: 048
  2. ZOLPIDEM [Suspect]
  3. LITHIUM CARBONATE [Suspect]

REACTIONS (1)
  - DRUG TOXICITY [None]
